FAERS Safety Report 4886826-9 (Version None)
Quarter: 2006Q1

REPORT INFORMATION
  Report Type: 
  Country: None (occurrence: None)
  Receive Date: 20060119
  Receipt Date: 20060119
  Transmission Date: 20060701
  Serious: Yes (Hospitalization)
  Sender: FDA-Public Use
  Company Number: None

PATIENT
  Age: 57 Year
  Sex: Male
  Weight: 74.1 kg

DRUGS (13)
  1. LEVOFLOXACIN [Suspect]
  2. XTRA CARE BODY LOTION [Concomitant]
  3. NORTRIPTYLINE HCL [Concomitant]
  4. MONTELUKAST [Concomitant]
  5. ENALAPRIL [Concomitant]
  6. ALLOPURINOL [Concomitant]
  7. TEMAZEPAM [Concomitant]
  8. OXYCODONE AND ACETAMINOPHEN [Concomitant]
  9. POTASSIUM CHLORIDE [Concomitant]
  10. IPRATROPIUM BROMIDE [Concomitant]
  11. ALBUTEROL SULFATE AUTOHALER [Concomitant]
  12. DM / GUAIF [Concomitant]
  13. CLINDAMYCIN [Concomitant]

REACTIONS (2)
  - PRURITUS [None]
  - RASH [None]
